FAERS Safety Report 9166940 (Version 1)
Quarter: 2013Q1

REPORT INFORMATION
  Report Type: Report from Study
  Country: DE (occurrence: DE)
  Receive Date: 20130317
  Receipt Date: 20130317
  Transmission Date: 20140127
  Serious: Yes (Hospitalization)
  Sender: FDA-Public Use
  Company Number: DE-UCBSA-080270

PATIENT
  Age: 50 Year
  Sex: Female

DRUGS (4)
  1. VIMPAT [Suspect]
     Indication: EPILEPSY
     Dosage: 50MG DAY
     Dates: start: 20090527, end: 2009
  2. VIMPAT [Suspect]
     Indication: EPILEPSY
     Dosage: 300MG/DAY
     Dates: start: 2009
  3. PREGABALIN [Concomitant]
     Indication: EPILEPSY
     Dosage: 450MG/DAY
  4. OXCARBAZEPINE [Concomitant]
     Indication: EPILEPSY

REACTIONS (1)
  - Convulsion [Unknown]
